FAERS Safety Report 8387197-6 (Version None)
Quarter: 2012Q2

REPORT INFORMATION
  Report Type: 
  Country: None (occurrence: None)
  Receive Date: 20120525
  Receipt Date: 20120514
  Transmission Date: 20120825
  Serious: Yes (Other)
  Sender: FDA-Public Use
  Company Number: JP-UCBSA-057290

PATIENT

DRUGS (3)
  1. KEPPRA [Suspect]
     Dosage: UNKNOWN DOSE
     Route: 048
  2. CYCLOSPORINE [Concomitant]
     Dosage: UNKNOWN DOSE
  3. PROGRAF [Concomitant]
     Dosage: UNKNOWN DOSE

REACTIONS (1)
  - STEM CELL TRANSPLANT [None]
